FAERS Safety Report 4453558-0 (Version None)
Quarter: 2004Q3

REPORT INFORMATION
  Report Type: 
  Country: None (occurrence: None)
  Receive Date: 20040920
  Receipt Date: 20040211
  Transmission Date: 20050211
  Serious: Yes (Life-Threatening)
  Sender: FDA-Public Use
  Company Number: FR-BRISTOL-MYERS SQUIBB COMPANY-12508834

PATIENT
  Age: 68 Year
  Sex: Male
  Weight: 78 kg

DRUGS (7)
  1. HOLOXAN [Suspect]
     Indication: SARCOMA
     Dosage: = 5 GRAMS/M2 OVER 12 HOURS
     Route: 042
     Dates: start: 20031229, end: 20031230
  2. CISPLATIN [Suspect]
     Indication: SARCOMA
     Route: 042
     Dates: start: 20031229, end: 20031230
  3. DOXORUBICIN [Suspect]
     Indication: SARCOMA
     Dosage: OVER 3 HOURS
     Route: 042
     Dates: start: 20031229, end: 20031230
  4. PRIMPERAN INJ [Concomitant]
     Route: 042
  5. ZOPHREN [Concomitant]
     Route: 042
  6. TRANXENE [Concomitant]
     Route: 042
  7. SOLU-MEDROL [Concomitant]
     Route: 042

REACTIONS (3)
  - ACUTE CORONARY SYNDROME [None]
  - DUODENAL ULCER HAEMORRHAGE [None]
  - RENAL FAILURE ACUTE [None]
